FAERS Safety Report 11027498 (Version 1)
Quarter: 2015Q2

REPORT INFORMATION
  Report Type: Spontaneous
  Country: US (occurrence: US)
  Receive Date: 20150414
  Receipt Date: 20150414
  Transmission Date: 20150821
  Serious: No
  Sender: FDA-Public Use
  Company Number: US-B.I. PHARMACEUTICALS,INC./RIDGEFIELD-2015-BI-18319BP

PATIENT
  Age: 63 Year
  Sex: Female
  Weight: 104.33 kg

DRUGS (13)
  1. MELOXICAM. [Suspect]
     Active Substance: MELOXICAM
     Indication: JOINT STIFFNESS
     Route: 065
     Dates: start: 201407, end: 201407
  2. METFORMIN [Concomitant]
     Active Substance: METFORMIN HYDROCHLORIDE
     Indication: DIABETES MELLITUS
     Route: 065
  3. NADOLOL. [Concomitant]
     Active Substance: NADOLOL
     Indication: VARICES OESOPHAGEAL
     Route: 065
  4. RANITIDINE [Concomitant]
     Active Substance: RANITIDINE\RANITIDINE HYDROCHLORIDE
     Indication: ABDOMINAL DISCOMFORT
     Route: 065
  5. HUMIRA [Suspect]
     Active Substance: ADALIMUMAB
     Dosage: 80 MG
     Route: 058
  6. NEXIUM [Concomitant]
     Active Substance: ESOMEPRAZOLE MAGNESIUM
     Indication: ABDOMINAL DISCOMFORT
  7. LISINOPRIL. [Concomitant]
     Active Substance: LISINOPRIL
     Indication: HYPERTENSION
     Route: 065
  8. NADOLOL. [Concomitant]
     Active Substance: NADOLOL
     Indication: GASTRIC VARICES
  9. HUMIRA [Suspect]
     Active Substance: ADALIMUMAB
     Dosage: 2.8571 MG
     Route: 058
     Dates: end: 201407
  10. HUMIRA [Suspect]
     Active Substance: ADALIMUMAB
     Indication: CROHN^S DISEASE
     Dosage: 160 MG
     Route: 058
  11. HUMIRA [Suspect]
     Active Substance: ADALIMUMAB
     Dosage: 5.7143 MG
     Route: 058
     Dates: start: 201407, end: 201412
  12. GLYBURIDE. [Concomitant]
     Active Substance: GLYBURIDE
     Indication: DIABETES MELLITUS
     Route: 065
  13. NEXIUM [Concomitant]
     Active Substance: ESOMEPRAZOLE MAGNESIUM
     Indication: HIATUS HERNIA
     Route: 065

REACTIONS (13)
  - Dyspepsia [Unknown]
  - Vomiting [Recovered/Resolved]
  - Facial pain [Unknown]
  - Laceration [Unknown]
  - Abdominal discomfort [Recovered/Resolved]
  - Joint stiffness [Recovered/Resolved]
  - Ligament sprain [Unknown]
  - Fall [Recovered/Resolved]
  - Contusion [Unknown]
  - Pain in extremity [Recovered/Resolved]
  - Arthralgia [Unknown]
  - Fall [Recovered/Resolved]
  - Abdominal pain [Unknown]

NARRATIVE: CASE EVENT DATE: 2014
